FAERS Safety Report 16042157 (Version 1)
Quarter: 2019Q2

REPORT INFORMATION
  Report Type: Spontaneous
  Country: US (occurrence: US)
  Receive Date: 20190306
  Receipt Date: 20190306
  Transmission Date: 20190711
  Serious: Yes (Other)
  Sender: FDA-Public Use
  Company Number: None

PATIENT
  Age: 25 Year
  Sex: Female
  Weight: 60 kg

DRUGS (2)
  1. TACROLIMUS. [Suspect]
     Active Substance: TACROLIMUS
     Indication: LUNG TRANSPLANT
     Dates: start: 20180720, end: 20180820
  2. GENERIC TACROLIMUS [Concomitant]
     Dates: start: 20180101, end: 20180820

REACTIONS (3)
  - Product substitution issue [None]
  - Drug level above therapeutic [None]
  - Drug level below therapeutic [None]

NARRATIVE: CASE EVENT DATE: 20180720
